FAERS Safety Report 12995505 (Version 1)
Quarter: 2016Q4

REPORT INFORMATION
  Report Type: Report from Study
  Country: BR (occurrence: BR)
  Receive Date: 20161202
  Receipt Date: 20161202
  Transmission Date: 20170207
  Serious: Yes (Death, Hospitalization, Other)
  Sender: FDA-Public Use
  Company Number: BR-JNJFOC-20160822616

PATIENT
  Age: 80 Year
  Sex: Female
  Weight: 67 kg

DRUGS (1)
  1. SIMPONI [Suspect]
     Active Substance: GOLIMUMAB
     Indication: RHEUMATOID ARTHRITIS
     Route: 058
     Dates: start: 20150207, end: 20161102

REACTIONS (4)
  - Hypertension [Unknown]
  - Pneumonia [Unknown]
  - Cardiac arrest [Fatal]
  - Arrhythmia [Unknown]

NARRATIVE: CASE EVENT DATE: 20161102
